FAERS Safety Report 9927300 (Version 2)
Quarter: 2014Q1

REPORT INFORMATION
  Report Type: Spontaneous
  Country: US (occurrence: US)
  Receive Date: 20140226
  Receipt Date: 20140226
  Transmission Date: 20141002
  Serious: No
  Sender: FDA-Public Use
  Company Number: US-GILEAD-2012-0064515

PATIENT
  Age: 28 Year
  Sex: Male

DRUGS (1)
  1. STRIBILD [Suspect]
     Indication: HIV INFECTION
     Dosage: UNK
     Dates: start: 201211

REACTIONS (1)
  - Faeces discoloured [Recovered/Resolved]
